FAERS Safety Report 15693928 (Version 1)
Quarter: 2018Q4

REPORT INFORMATION
  Report Type: Spontaneous
  Country: US (occurrence: US)
  Receive Date: 20181126
  Receipt Date: 20181126
  Transmission Date: 20190205
  Serious: No
  Sender: FDA-Public Use
  Company Number: None

PATIENT
  Age: 59 Year
  Sex: Female

DRUGS (13)
  1. VITAMIN D3 [Concomitant]
     Active Substance: CHOLECALCIFEROL
  2. FAMOTIDINE. [Concomitant]
     Active Substance: FAMOTIDINE
  3. HYDROXYCHLOR [Concomitant]
     Active Substance: HYDROXYCHLOROQUINE
  4. METROPOL [Concomitant]
  5. CLOPOIDOGREL [Concomitant]
  6. XELJANZ [Suspect]
     Active Substance: TOFACITINIB CITRATE
     Indication: RHEUMATOID ARTHRITIS
     Route: 048
     Dates: start: 20180130, end: 20180915
  7. FLAXSEED [Concomitant]
     Active Substance: FLAX SEED
  8. GLUCOSAMINE [Concomitant]
     Active Substance: GLUCOSAMINE
  9. ESTRADIOL. [Concomitant]
     Active Substance: ESTRADIOL
  10. CYCLOBENZAPR [Concomitant]
     Active Substance: CYCLOBENZAPRINE
  11. LOSARTAN. [Concomitant]
     Active Substance: LOSARTAN
  12. SYNTHROID [Concomitant]
     Active Substance: LEVOTHYROXINE SODIUM
  13. RESTASIS [Concomitant]
     Active Substance: CYCLOSPORINE

REACTIONS (4)
  - Obstruction [None]
  - Myocardial infarction [None]
  - Chest pain [None]
  - Stenosis [None]

NARRATIVE: CASE EVENT DATE: 201811
